FAERS Safety Report 16703844 (Version 2)
Quarter: 2019Q3

REPORT INFORMATION
  Report Type: Report from Study
  Country: RO (occurrence: RO)
  Receive Date: 20190814
  Receipt Date: 20190930
  Transmission Date: 20191004
  Serious: Yes (Hospitalization, Other)
  Sender: FDA-Public Use
  Company Number: RO-GILEAD-2019-0389126

PATIENT
  Age: 61 Year
  Sex: Female

DRUGS (6)
  1. ARCOXIA [Concomitant]
     Active Substance: ETORICOXIB
  2. MEDROL SPECIFIC [Concomitant]
  3. AFLAMIL [Concomitant]
     Active Substance: ACECLOFENAC
  4. LEDIPASVIR/SOFOSBUVIR [Suspect]
     Active Substance: LEDIPASVIR\SOFOSBUVIR
     Indication: CHRONIC HEPATITIS C
     Dosage: 1 DF, QD
     Route: 048
     Dates: start: 20190124, end: 20190417
  5. CONTROLOC CONTROL [Concomitant]
  6. ENALAPRIL [Concomitant]
     Active Substance: ENALAPRIL

REACTIONS (6)
  - Pruritus [Not Recovered/Not Resolved]
  - Spinal pain [Recovered/Resolved]
  - Biliary colic [Recovered/Resolved]
  - Headache [Recovered/Resolved]
  - Pain in extremity [Recovering/Resolving]
  - Drug ineffective [Not Recovered/Not Resolved]

NARRATIVE: CASE EVENT DATE: 201901
